FAERS Safety Report 7399347-9 (Version None)
Quarter: 2011Q1

REPORT INFORMATION
  Report Type: 
  Country: None (occurrence: None)
  Receive Date: 20110328
  Receipt Date: 20110315
  Transmission Date: 20110831
  Serious: Yes (Other)
  Sender: FDA-Public Use
  Company Number: DSA_45211_2011

PATIENT
  Age: 64 Year
  Sex: Male

DRUGS (7)
  1. NEXIUM [Concomitant]
  2. GLUCOPHAGE [Concomitant]
  3. ATORVASTATIN CALCIUM [Concomitant]
  4. ENALAPRIL MALEATE [Suspect]
     Indication: ESSENTIAL HYPERTENSION
     Dosage: 10 MG QD, ORAL
     Route: 048
     Dates: start: 20000101
  5. XATRAL [Concomitant]
  6. ASPIRIN [Concomitant]
  7. OMEPRAZOLE [Concomitant]

REACTIONS (3)
  - MYCOSIS FUNGOIDES [None]
  - RASH [None]
  - PSEUDOLYMPHOMA [None]
